FAERS Safety Report 23625441 (Version 1)
Quarter: 2024Q1

REPORT INFORMATION
  Report Type: Report from Study
  Country: FR (occurrence: FR)
  Receive Date: 20240313
  Receipt Date: 20240313
  Transmission Date: 20240410
  Serious: Yes (Other)
  Sender: FDA-Public Use
  Company Number: FR-ABBVIE-5675219

PATIENT
  Age: 60 Year
  Sex: Male

DRUGS (2)
  1. CARBIDOPA\LEVODOPA [Suspect]
     Active Substance: CARBIDOPA\LEVODOPA
     Indication: Parkinson^s disease
     Route: 050
     Dates: start: 20231111
  2. CARBIDOPA\LEVODOPA [Suspect]
     Active Substance: CARBIDOPA\LEVODOPA

REACTIONS (5)
  - Poor quality sleep [Unknown]
  - Hot flush [Unknown]
  - Anxiety [Unknown]
  - Blood pressure systolic increased [Unknown]
  - Obstruction [Unknown]

NARRATIVE: CASE EVENT DATE: 20240301
